FAERS Safety Report 25089692 (Version 1)
Quarter: 2025Q1

REPORT INFORMATION
  Report Type: Spontaneous
  Country: US (occurrence: US)
  Receive Date: 20250318
  Receipt Date: 20250318
  Transmission Date: 20250409
  Serious: No
  Sender: ENDO
  Company Number: US-ENDO USA, INC.-2024-050641

PATIENT
  Sex: Male
  Weight: 104.31 kg

DRUGS (4)
  1. XIAFLEX [Suspect]
     Active Substance: COLLAGENASE CLOSTRIDIUM HISTOLYTICUM
     Indication: Dupuytren^s contracture
     Route: 051
     Dates: start: 2022
  2. XIAFLEX [Suspect]
     Active Substance: COLLAGENASE CLOSTRIDIUM HISTOLYTICUM
     Route: 051
     Dates: start: 2023
  3. LOSARTAN [Concomitant]
     Active Substance: LOSARTAN
     Indication: Blood pressure abnormal
     Route: 065
  4. AMLODIPINE [Concomitant]
     Active Substance: AMLODIPINE BESYLATE
     Indication: Blood pressure abnormal
     Route: 065

REACTIONS (2)
  - Dupuytren^s contracture [Not Recovered/Not Resolved]
  - Therapeutic product effect incomplete [Unknown]
